FAERS Safety Report 6241376-2 (Version None)
Quarter: 2009Q2

REPORT INFORMATION
  Report Type: 
  Country: None (occurrence: None)
  Receive Date: 20090623
  Receipt Date: 20090615
  Transmission Date: 20091009
  Serious: Yes (Hospitalization)
  Sender: FDA-Public Use
  Company Number: DE-GILEAD-2009-0021941

PATIENT
  Sex: Male
  Weight: 67.9 kg

DRUGS (3)
  1. VIREAD [Suspect]
     Indication: HEPATITIS B
     Route: 048
     Dates: start: 20080701, end: 20090401
  2. PANTOPRAZOL [Concomitant]
     Indication: PROPHYLAXIS
     Route: 048
     Dates: start: 20090401
  3. TORSEMIDE [Concomitant]
     Indication: OEDEMA
     Route: 048
     Dates: start: 20090401

REACTIONS (2)
  - GLOMERULONEPHRITIS [None]
  - NEPHROTIC SYNDROME [None]
